FAERS Safety Report 6657953-0 (Version None)
Quarter: 2010Q1

REPORT INFORMATION
  Report Type: 
  Country: None (occurrence: None)
  Receive Date: 20100330
  Receipt Date: 20100323
  Transmission Date: 20100710
  Serious: Yes (Life-Threatening, Hospitalization)
  Sender: FDA-Public Use
  Company Number: FR-ROCHE-693611

PATIENT
  Sex: Male

DRUGS (8)
  1. VALIUM [Suspect]
     Indication: ALCOHOL DETOXIFICATION
     Route: 048
     Dates: start: 20091017, end: 20091026
  2. VALIUM [Interacting]
     Dosage: IN THE EVENING
     Route: 048
     Dates: end: 20091108
  3. SEROPLEX [Interacting]
     Indication: DEPRESSION
     Route: 048
     Dates: start: 20091020, end: 20091106
  4. SEROPLEX [Interacting]
     Route: 048
     Dates: start: 20091107, end: 20091108
  5. SEROPLEX [Interacting]
     Route: 048
     Dates: start: 20091117
  6. TIAPRIDAL [Interacting]
     Indication: DEPRESSION
     Dosage: IN THE EVENING
     Route: 048
     Dates: start: 20091106, end: 20091108
  7. MEPRONIZINE [Interacting]
     Indication: INSOMNIA
     Dosage: TAKEN ONCE
     Route: 065
     Dates: start: 20091108, end: 20091108
  8. BUSPAR [Interacting]
     Indication: DEPRESSION
     Route: 048
     Dates: start: 20091106, end: 20091108

REACTIONS (5)
  - ALTERED STATE OF CONSCIOUSNESS [None]
  - BRADYCARDIA [None]
  - CONFUSIONAL STATE [None]
  - DRUG INTERACTION [None]
  - HYPOTHERMIA [None]
